FAERS Safety Report 18054028 (Version 1)
Quarter: 2020Q3

REPORT INFORMATION
  Report Type: Spontaneous
  Country: US (occurrence: US)
  Receive Date: 20200722
  Receipt Date: 20200722
  Transmission Date: 20201103
  Serious: No
  Sender: FDA-Public Use
  Company Number: US-AMGEN-USASP2020114972

PATIENT
  Age: 65 Year
  Sex: Female

DRUGS (1)
  1. PROLIA [Suspect]
     Active Substance: DENOSUMAB
     Indication: OSTEOPOROSIS POSTMENOPAUSAL
     Dosage: 60 MILLIGRAM
     Route: 065
     Dates: start: 20200603

REACTIONS (8)
  - Urticaria [Unknown]
  - Herpes zoster [Unknown]
  - Pyrexia [Unknown]
  - Pain in extremity [Unknown]
  - Hypotension [Unknown]
  - Fatigue [Unknown]
  - Lymphadenopathy [Unknown]
  - Arthralgia [Unknown]

NARRATIVE: CASE EVENT DATE: 202007
